FAERS Safety Report 5633132-0 (Version None)
Quarter: 2008Q1

REPORT INFORMATION
  Report Type: 
  Country: None (occurrence: None)
  Receive Date: 20080221
  Receipt Date: 20080214
  Transmission Date: 20080703
  Serious: Yes (Other)
  Sender: FDA-Public Use
  Company Number: US-AVENTIS-200810366US

PATIENT
  Sex: Female
  Weight: 59 kg

DRUGS (10)
  1. TRENTAL [Suspect]
     Route: 048
     Dates: start: 20061113, end: 20061201
  2. LEVOTHYROXINE SODIUM [Concomitant]
     Dosage: DOSE: 100 MCG HALF TAB
     Route: 048
  3. ASPIRIN [Concomitant]
     Route: 048
  4. TRICOR                             /00090101/ [Concomitant]
     Route: 048
  5. SPIRONOLACTONE [Concomitant]
     Route: 048
     Dates: start: 20050401
  6. HYDROCHLOROTHIAZIDE [Concomitant]
     Route: 048
     Dates: start: 20050401
  7. ATENOLOL [Concomitant]
     Dosage: DOSE: 100 MG HALF TAB BID
     Route: 048
     Dates: start: 20050401
  8. FOLIC ACID [Concomitant]
     Route: 048
  9. MULTI-VITAMINS [Concomitant]
     Dosage: DOSE: 1 TAB
     Route: 048
  10. EVENING PRIMROSE [Concomitant]
     Route: 048

REACTIONS (8)
  - ABDOMINAL DISCOMFORT [None]
  - ASTHENIA [None]
  - GASTROINTESTINAL MOTILITY DISORDER [None]
  - HYPOKINESIA [None]
  - INFLUENZA LIKE ILLNESS [None]
  - LOSS OF CONSCIOUSNESS [None]
  - VOMITING [None]
  - WEIGHT DECREASED [None]
